FAERS Safety Report 4681136-7 (Version None)
Quarter: 2005Q2

REPORT INFORMATION
  Report Type: 
  Country: None (occurrence: None)
  Receive Date: 20050603
  Receipt Date: 20050310
  Transmission Date: 20051028
  Serious: Yes (Hospitalization, Disabling)
  Sender: FDA-Public Use
  Company Number: US-MERCK-0503USA02043

PATIENT
  Age: 72 Year
  Sex: Male
  Weight: 73 kg

DRUGS (6)
  1. VIOXX [Suspect]
     Indication: ARTHRITIS
     Route: 048
     Dates: start: 20010901, end: 20021201
  2. CAPOTEN [Concomitant]
     Indication: HYPERTENSION
     Route: 065
     Dates: start: 19790101
  3. ZESTRIL [Concomitant]
     Indication: HYPERTENSION
     Route: 065
     Dates: start: 19790101
  4. TOPROL-XL [Concomitant]
     Indication: HYPERTENSION
     Route: 065
     Dates: start: 19850101
  5. CARDIZEM [Concomitant]
     Indication: CHEST PAIN
     Route: 065
     Dates: start: 19990101
  6. ASPIRIN [Concomitant]
     Indication: PROPHYLAXIS
     Route: 065
     Dates: start: 19990101

REACTIONS (21)
  - ACUTE MYOCARDIAL INFARCTION [None]
  - ANXIETY DISORDER [None]
  - ATELECTASIS [None]
  - ATRIOVENTRICULAR BLOCK [None]
  - ATRIOVENTRICULAR BLOCK COMPLETE [None]
  - BLOOD CHOLESTEROL INCREASED [None]
  - BORDERLINE GLAUCOMA [None]
  - BRADYCARDIA [None]
  - CHEST PAIN [None]
  - CORONARY ARTERY DISEASE [None]
  - DEPRESSION [None]
  - DIABETES MELLITUS NON-INSULIN-DEPENDENT [None]
  - EMOTIONAL DISTRESS [None]
  - GASTROINTESTINAL DISORDER [None]
  - GASTROOESOPHAGEAL REFLUX DISEASE [None]
  - GLAUCOMA [None]
  - INSOMNIA [None]
  - LEUKOCYTOSIS [None]
  - OSTEOARTHRITIS [None]
  - PAIN [None]
  - RHEUMATOID ARTHRITIS [None]
